FAERS Safety Report 26196443 (Version 1)
Quarter: 2025Q4

REPORT INFORMATION
  Report Type: Spontaneous
  Country: CA (occurrence: CA)
  Receive Date: 20251224
  Receipt Date: 20251224
  Transmission Date: 20260118
  Serious: Yes (Hospitalization)
  Sender: HLS THERAPEUTICS
  Company Number: CA-HLS-202503268

PATIENT
  Age: 69 Year
  Sex: Male
  Weight: 86 kg

DRUGS (13)
  1. BENZTROPINE [Concomitant]
     Active Substance: BENZTROPINE
     Dosage: NOT SPECIFIED DOSAGE FORM
     Route: 065
  2. BISACODYL [Concomitant]
     Active Substance: BISACODYL
     Dosage: NOT SPECIFIED DOSAGE FORM
     Route: 065
  3. CHOLECALCIFEROL [Concomitant]
     Active Substance: CHOLECALCIFEROL
     Dosage: NOT SPECIFIED DOSAGE FORM
     Route: 065
  4. CLOZARIL [Suspect]
     Active Substance: CLOZAPINE
     Indication: Schizoaffective disorder
     Dosage: AS REQUIRED?TABLETS DOSAGE FORM
     Route: 048
  5. CLOZARIL [Suspect]
     Active Substance: CLOZAPINE
     Indication: Schizoaffective disorder
     Dosage: AS REQUIRED?TABLETS DOSAGE FORM?THERAPY DURATION: 15 YEARS
     Route: 048
  6. DEXLANSOPRAZOLE [Concomitant]
     Active Substance: DEXLANSOPRAZOLE
     Dosage: CAPSULE, DELAYED RELEASE DOSAGE FORM
     Route: 065
  7. DIVALPROEX SODIUM [Concomitant]
     Active Substance: DIVALPROEX SODIUM
     Dosage: NOT SPECIFIED DOSAGE FORM
     Route: 065
  8. DOCUSATE SODIUM [Concomitant]
     Active Substance: DOCUSATE SODIUM
     Dosage: NOT SPECIFIED DOSAGE FORM
     Route: 065
  9. FINASTERIDE [Concomitant]
     Active Substance: FINASTERIDE
     Dosage: TABLETS DOSAGE FORM
     Route: 065
  10. POLYETHYLENE GLYCOL 3350 [Concomitant]
     Active Substance: POLYETHYLENE GLYCOL 3350
     Dosage: POWDER FOR SOLUTION ORAL DOSAGE FORM
     Route: 065
  11. RAPAFLO [Concomitant]
     Active Substance: SILODOSIN
     Dosage: NOT SPECIFIED DOSAGE FORM
     Route: 065
  12. SENNOSIDES [Concomitant]
     Active Substance: SENNOSIDES
     Dosage: NOT SPECIFIED DOSAGE FORM
     Route: 065
  13. TRELEGY ELLIPTA [Concomitant]
     Active Substance: FLUTICASONE FUROATE\UMECLIDINIUM BROMIDE\VILANTEROL TRIFENATATE
     Dosage: POWDER DOSAGE FORM
     Route: 065

REACTIONS (5)
  - Asthenia [Recovering/Resolving]
  - Back pain [Recovering/Resolving]
  - Chest pain [Recovering/Resolving]
  - Movement disorder [Recovering/Resolving]
  - Pericardial effusion [Recovering/Resolving]
